FAERS Safety Report 19644643 (Version 1)
Quarter: 2021Q3

REPORT INFORMATION
  Report Type: Spontaneous
  Country: US (occurrence: US)
  Receive Date: 20210802
  Receipt Date: 20210802
  Transmission Date: 20211014
  Serious: Yes (Life-Threatening, Hospitalization, Disabling, Other)
  Sender: FDA-Public Use
  Company Number: US-HIKMA PHARMACEUTICALS USA INC.-US-H14001-21-55058

PATIENT
  Age: 15 Year
  Sex: Female

DRUGS (6)
  1. DOXORUBICIN [Suspect]
     Active Substance: DOXORUBICIN
     Indication: NUT MIDLINE CARCINOMA
     Dosage: UNKNOWN
     Route: 065
  2. IFOSFAMIDE. [Suspect]
     Active Substance: IFOSFAMIDE
     Indication: NUT MIDLINE CARCINOMA
     Dosage: UNKNOWN
     Route: 065
  3. VINCRISTINE [Suspect]
     Active Substance: VINCRISTINE
     Indication: NUT MIDLINE CARCINOMA
     Dosage: UNKNOWN
     Route: 065
  4. DOXORUBICIN [Suspect]
     Active Substance: DOXORUBICIN
     Indication: NUT MIDLINE CARCINOMA
     Dosage: UNKNOWN
     Route: 065
  5. CISPLATIN. [Suspect]
     Active Substance: CISPLATIN
     Indication: NUT MIDLINE CARCINOMA
     Dosage: UNKNOWN
     Route: 065
  6. IFOSFAMIDE. [Suspect]
     Active Substance: IFOSFAMIDE
     Indication: NUT MIDLINE CARCINOMA
     Dosage: UNKNOWN
     Route: 065

REACTIONS (9)
  - Chronic sinusitis [Unknown]
  - Nausea [Unknown]
  - Vomiting [Unknown]
  - Deafness [Recovering/Resolving]
  - Weight decreased [Unknown]
  - Anaemia [Unknown]
  - Thrombocytopenia [Unknown]
  - Middle ear effusion [Unknown]
  - Ototoxicity [Recovering/Resolving]
